FAERS Safety Report 10551248 (Version 1)
Quarter: 2014Q4

REPORT INFORMATION
  Report Type: Spontaneous
  Country: US (occurrence: None)
  Receive Date: 20141028
  Receipt Date: 20141028
  Transmission Date: 20150529
  Serious: Yes (Other)
  Sender: FDA-Public Use
  Company Number: None

PATIENT
  Age: 61 Year
  Sex: Female
  Weight: 56.25 kg

DRUGS (8)
  1. TYLENOL [Concomitant]
     Active Substance: ACETAMINOPHEN
  2. MYRBETRIQ [Suspect]
     Active Substance: MIRABEGRON
     Indication: HYPERTONIC BLADDER
     Dosage: 1
     Route: 048
     Dates: start: 20140928, end: 20141004
  3. PAXEL [Concomitant]
     Active Substance: PACLITAXEL
  4. TRAZODONE [Concomitant]
     Active Substance: TRAZODONE HYDROCHLORIDE
  5. MYRBETRIQ [Suspect]
     Active Substance: MIRABEGRON
     Indication: HEADACHE
     Dosage: 1
     Route: 048
     Dates: start: 20140928, end: 20141004
  6. FOSAMAX [Concomitant]
     Active Substance: ALENDRONATE SODIUM
  7. IBUPROFEN. [Concomitant]
     Active Substance: IBUPROFEN
  8. CALCIUM W, VIT D [Concomitant]

REACTIONS (2)
  - Blood pressure increased [None]
  - Pain [None]

NARRATIVE: CASE EVENT DATE: 20140928
